FAERS Safety Report 11331243 (Version 1)
Quarter: 2015Q3

REPORT INFORMATION
  Report Type: Spontaneous
  Country: US (occurrence: None)
  Receive Date: 20150730
  Receipt Date: 20150730
  Transmission Date: 20151125
  Serious: No
  Sender: FDA-Public Use
  Company Number: None

PATIENT
  Age: 84 Year
  Sex: Male
  Weight: 72.58 kg

DRUGS (5)
  1. BENADRYL [Concomitant]
     Active Substance: DIPHENHYDRAMINE HYDROCHLORIDE
  2. CINNAMON. [Concomitant]
     Active Substance: CINNAMON
  3. ALEVE [Concomitant]
     Active Substance: NAPROXEN SODIUM
  4. HYDERGINS [Concomitant]
  5. MIRTAZAPINE 15 MG [Suspect]
     Active Substance: MIRTAZAPINE
     Indication: INSOMNIA
     Route: 048
     Dates: start: 20150409, end: 20150523

REACTIONS (6)
  - Agitation [None]
  - Fear [None]
  - Hallucination [None]
  - Muscle rigidity [None]
  - Hyperhidrosis [None]
  - Confusional state [None]

NARRATIVE: CASE EVENT DATE: 20150523
